FAERS Safety Report 20861012 (Version 1)
Quarter: 2022Q2

REPORT INFORMATION
  Report Type: Spontaneous
  Country: US (occurrence: None)
  Receive Date: 20220520
  Receipt Date: 20220520
  Transmission Date: 20220721
  Serious: Yes (Other)
  Sender: FDA-Public Use
  Company Number: None

PATIENT
  Age: 52 Year
  Sex: Female

DRUGS (2)
  1. HUMIRA [Suspect]
     Active Substance: ADALIMUMAB
     Dosage: OTHER FREQUENCY : WEEKLY;?
     Route: 058
     Dates: start: 20210203, end: 20220519
  2. HUMIRA [Concomitant]
     Active Substance: ADALIMUMAB
     Dates: start: 20210203, end: 20220519

REACTIONS (4)
  - Migraine [None]
  - Hypoaesthesia [None]
  - Paraesthesia [None]
  - Toothache [None]

NARRATIVE: CASE EVENT DATE: 20220519
